FAERS Safety Report 10039856 (Version 1)
Quarter: 2014Q1

REPORT INFORMATION
  Report Type: Spontaneous
  Country: US (occurrence: US)
  Receive Date: 20140326
  Receipt Date: 20140326
  Transmission Date: 20141002
  Serious: No
  Sender: FDA-Public Use
  Company Number: US-JNJFOC-20140309981

PATIENT
  Sex: Female

DRUGS (7)
  1. DURAGESIC [Suspect]
     Indication: BACK PAIN
     Dosage: 100UG/HR+25UG/HR
     Route: 062
     Dates: start: 2012
  2. FENTANYL TRANSDERMAL SYSTEM [Suspect]
     Indication: BACK PAIN
     Dosage: 100UG/HR+ 25UG/HR
     Route: 062
     Dates: start: 2012
  3. CODEINE [Suspect]
     Indication: PRODUCT USED FOR UNKNOWN INDICATION
     Route: 065
  4. DILAUDID [Concomitant]
     Indication: PAIN
     Route: 065
  5. LIDODERM [Concomitant]
     Indication: PAIN
     Route: 065
  6. KETOROLAC [Concomitant]
     Indication: PAIN
     Route: 050
  7. FLEXERIL [Concomitant]
     Indication: PAIN
     Route: 065

REACTIONS (3)
  - Product adhesion issue [Unknown]
  - Pruritus [Not Recovered/Not Resolved]
  - Drug dose omission [Unknown]
